FAERS Safety Report 5771669-4 (Version None)
Quarter: 2008Q2

REPORT INFORMATION
  Report Type: 
  Country: None (occurrence: None)
  Receive Date: 20080613
  Receipt Date: 20080608
  Transmission Date: 20081010
  Serious: Yes (Death, Other)
  Sender: FDA-Public Use
  Company Number: US-WYE-H04405208

PATIENT

DRUGS (1)
  1. TYGACIL [Suspect]
     Dosage: UNKNOWN

REACTIONS (2)
  - DEATH [None]
  - SEPSIS [None]
